FAERS Safety Report 4652433-6 (Version None)
Quarter: 2005Q2

REPORT INFORMATION
  Report Type: 
  Country: None (occurrence: None)
  Receive Date: 20050504
  Receipt Date: 20050427
  Transmission Date: 20051028
  Serious: Yes (Hospitalization)
  Sender: FDA-Public Use
  Company Number: US-GLAXOSMITHKLINE-A0555959A

PATIENT
  Sex: Female

DRUGS (1)
  1. BC POWDER [Suspect]
     Indication: MIGRAINE
     Route: 048

REACTIONS (1)
  - INTRACRANIAL ANEURYSM [None]
